FAERS Safety Report 4728594-7 (Version None)
Quarter: 2005Q3

REPORT INFORMATION
  Report Type: 
  Country: None (occurrence: None)
  Receive Date: 20050727
  Receipt Date: 20050714
  Transmission Date: 20060218
  Serious: Yes (Other)
  Sender: FDA-Public Use
  Company Number: 2005104298

PATIENT
  Age: 46 Year
  Sex: Female

DRUGS (2)
  1. DIFLUCAN [Suspect]
     Indication: URTICARIA
     Dosage: 200 MG (200 MG, 1 IN 1 D); ORAL
     Route: 048
     Dates: start: 20040501, end: 20040101
  2. HISTADYL E.C. [Suspect]
     Indication: ILL-DEFINED DISORDER

REACTIONS (5)
  - CONDITION AGGRAVATED [None]
  - DRUG HYPERSENSITIVITY [None]
  - INFECTION [None]
  - SECRETION DISCHARGE [None]
  - URTICARIA [None]
